FAERS Safety Report 4517819-9 (Version None)
Quarter: 2004Q4

REPORT INFORMATION
  Report Type: 
  Country: None (occurrence: None)
  Receive Date: 20041130
  Receipt Date: 20030509
  Transmission Date: 20050328
  Serious: Yes (Death)
  Sender: FDA-Public Use
  Company Number: 2003-DE-01737ZA

PATIENT
  Age: 14 Year
  Sex: Female

DRUGS (3)
  1. VIRAMUNE [Suspect]
     Indication: HIV INFECTION
     Dosage: SEE IMAGE
     Route: 048
     Dates: start: 20030423, end: 20030504
  2. LAMIVUDINE [Suspect]
     Indication: HIV INFECTION
     Dosage: PO
     Route: 048
     Dates: start: 20030423, end: 20030504
  3. RETROVIR [Suspect]
     Indication: HIV INFECTION
     Dosage: PO
     Route: 048
     Dates: start: 20030423, end: 20030504

REACTIONS (2)
  - OROPHARYNGEAL CANDIDIASIS [None]
  - PHARYNGITIS [None]
